FAERS Safety Report 8984772 (Version 1)
Quarter: 2012Q4

REPORT INFORMATION
  Report Type: 
  Country: US (occurrence: US)
  Receive Date: 20121226
  Receipt Date: 20121226
  Transmission Date: 20130627
  Serious: Yes (Death, Other)
  Sender: FDA-Public Use
  Company Number: PHHY2012US119223

PATIENT
  Age: 67 Year
  Sex: Male

DRUGS (1)
  1. IMATINIB [Suspect]

REACTIONS (4)
  - Death [Fatal]
  - Nephrogenic systemic fibrosis [Unknown]
  - Disease progression [Unknown]
  - Cardiac failure [Unknown]
